FAERS Safety Report 4959422-2 (Version None)
Quarter: 2006Q1

REPORT INFORMATION
  Report Type: 
  Country: None (occurrence: None)
  Receive Date: 20060331
  Receipt Date: 20050801
  Transmission Date: 20060701
  Serious: Yes (Hospitalization, Other)
  Sender: FDA-Public Use
  Company Number: US-MERCK-0508USA00869

PATIENT
  Age: 47 Year
  Sex: Female
  Weight: 138 kg

DRUGS (10)
  1. VIOXX [Suspect]
     Indication: ARTHRITIS
     Route: 048
     Dates: start: 19990101, end: 20040601
  2. VIOXX [Suspect]
     Route: 048
  3. TYLENOL (CAPLET) [Concomitant]
     Route: 065
  4. ALBUTEROL [Concomitant]
     Route: 065
  5. GLUCOPHAGE [Concomitant]
     Route: 048
  6. PROZAC [Concomitant]
     Route: 065
  7. DARVOCET [Concomitant]
     Route: 048
  8. ULTRAM [Concomitant]
     Route: 048
  9. ALLEGRA [Concomitant]
     Route: 065
  10. PREDNISONE [Concomitant]
     Route: 065

REACTIONS (15)
  - ARTERIOSCLEROSIS [None]
  - ARTHRALGIA [None]
  - BRONCHITIS ACUTE [None]
  - CARDIOMEGALY [None]
  - CEREBROVASCULAR ACCIDENT [None]
  - CORONARY ARTERY DISEASE [None]
  - EYELID OEDEMA [None]
  - HEART RATE IRREGULAR [None]
  - MENISCUS LESION [None]
  - MYOCARDIAL INFARCTION [None]
  - PAIN [None]
  - PALPITATIONS [None]
  - RIB FRACTURE [None]
  - THROMBOSIS [None]
  - TRANSIENT ISCHAEMIC ATTACK [None]
